FAERS Safety Report 14737952 (Version 12)
Quarter: 2018Q4

REPORT INFORMATION
  Report Type: Spontaneous
  Country: US (occurrence: US)
  Receive Date: 20180409
  Receipt Date: 20181221
  Transmission Date: 20190204
  Serious: No
  Sender: FDA-Public Use
  Company Number: US-ALKERMES INC.-ALK-2018-001049

PATIENT
  Age: 59 Year
  Sex: Male
  Weight: 125.62 kg

DRUGS (19)
  1. ARISTADA [Suspect]
     Active Substance: ARIPIPRAZOLE LAUROXIL
     Indication: FEAR
  2. ARISTADA [Suspect]
     Active Substance: ARIPIPRAZOLE LAUROXIL
     Indication: SCHIZOPHRENIA
     Dosage: 1064 MG, Q8WK
     Route: 030
     Dates: start: 20170818
  3. ARISTADA [Suspect]
     Active Substance: ARIPIPRAZOLE LAUROXIL
     Indication: ANXIETY
  4. BENICAR [Concomitant]
     Active Substance: OLMESARTAN MEDOXOMIL
     Indication: BLOOD PRESSURE MEASUREMENT
     Dosage: 20 MG, QD
  5. ABILIFY [Concomitant]
     Active Substance: ARIPIPRAZOLE
     Indication: PRODUCT USED FOR UNKNOWN INDICATION
  6. AMITRIPTYLINE [Concomitant]
     Active Substance: AMITRIPTYLINE
     Indication: PRODUCT USED FOR UNKNOWN INDICATION
     Route: 065
  7. LAMICTAL [Concomitant]
     Active Substance: LAMOTRIGINE
     Indication: PRODUCT USED FOR UNKNOWN INDICATION
     Dosage: 0.5 DF, BID
  8. OTHER THERAPEUTIC PRODUCTS [Concomitant]
     Active Substance: UNSPECIFIED INGREDIENT
     Indication: HYPERSENSITIVITY
     Dosage: UNK
  9. AZOR [Suspect]
     Active Substance: AMLODIPINE BESYLATE\OLMESARTAN MEDOXOMIL
     Indication: BLOOD PRESSURE MEASUREMENT
     Dosage: UNK
  10. LORATADINE. [Concomitant]
     Active Substance: LORATADINE
     Indication: PRODUCT USED FOR UNKNOWN INDICATION
  11. OTHER THERAPEUTIC PRODUCTS [Concomitant]
     Active Substance: UNSPECIFIED INGREDIENT
     Indication: INSOMNIA
  12. SODIUM BICARBONATE. [Concomitant]
     Active Substance: SODIUM BICARBONATE
     Indication: DYSPEPSIA
     Dosage: UNK
  13. ELAVIL [Suspect]
     Active Substance: AMITRIPTYLINE HYDROCHLORIDE
     Indication: PRODUCT USED FOR UNKNOWN INDICATION
     Dosage: 200 MG, QHS
     Route: 048
     Dates: end: 2018
  14. BENICAR [Concomitant]
     Active Substance: OLMESARTAN MEDOXOMIL
     Dosage: 40 MG, QD
  15. OTHER THERAPEUTIC PRODUCTS [Concomitant]
     Active Substance: UNSPECIFIED INGREDIENT
     Indication: THYROID DISORDER
  16. LAMOTRIGINE. [Concomitant]
     Active Substance: LAMOTRIGINE
     Indication: ANXIETY
     Dosage: UNK
     Route: 065
  17. OTHER THERAPEUTIC PRODUCTS [Concomitant]
     Active Substance: UNSPECIFIED INGREDIENT
     Indication: HYPERTENSION
     Dosage: UNK
     Dates: end: 201806
  18. HYZAAR [Suspect]
     Active Substance: HYDROCHLOROTHIAZIDE\LOSARTAN POTASSIUM
     Indication: BLOOD PRESSURE MEASUREMENT
     Dosage: UNK
     Route: 065
     Dates: end: 2018
  19. ATENOLOL. [Concomitant]
     Active Substance: ATENOLOL
     Indication: PRODUCT USED FOR UNKNOWN INDICATION
     Dosage: UNK, QD

REACTIONS (35)
  - Pain in extremity [Recovered/Resolved]
  - Mania [Not Recovered/Not Resolved]
  - Blood pressure abnormal [Recovering/Resolving]
  - Tissue injury [Not Recovered/Not Resolved]
  - Onychomycosis [Recovered/Resolved]
  - Purulent discharge [Recovered/Resolved]
  - Joint injury [Unknown]
  - Peripheral vascular disorder [Not Recovered/Not Resolved]
  - Wound [Not Recovered/Not Resolved]
  - Vascular injury [Not Recovered/Not Resolved]
  - Erythema [Recovering/Resolving]
  - Somnolence [Recovering/Resolving]
  - Anxiety [Unknown]
  - Cognitive disorder [Not Recovered/Not Resolved]
  - Feeling abnormal [Recovered/Resolved]
  - Arthralgia [Recovering/Resolving]
  - Peripheral swelling [Not Recovered/Not Resolved]
  - Poor personal hygiene [Recovered/Resolved]
  - Off label use [Not Recovered/Not Resolved]
  - Skin atrophy [Not Recovered/Not Resolved]
  - Psychomotor hyperactivity [Not Recovered/Not Resolved]
  - Scratch [Recovering/Resolving]
  - Balance disorder [Unknown]
  - Fall [Recovered/Resolved]
  - Cellulitis [Recovering/Resolving]
  - Stress [Not Recovered/Not Resolved]
  - Weight increased [Not Recovered/Not Resolved]
  - Tremor [Recovered/Resolved]
  - Limb injury [Unknown]
  - Cyanosis [Not Recovered/Not Resolved]
  - Rash follicular [Recovering/Resolving]
  - Rash vesicular [Not Recovered/Not Resolved]
  - Burning sensation [Recovering/Resolving]
  - Fear [Not Recovered/Not Resolved]
  - Sleep deficit [Not Recovered/Not Resolved]

NARRATIVE: CASE EVENT DATE: 2017
